FAERS Safety Report 5298468-4 (Version None)
Quarter: 2007Q2

REPORT INFORMATION
  Report Type: 
  Country: None (occurrence: None)
  Receive Date: 20070416
  Receipt Date: 20070409
  Transmission Date: 20071010
  Serious: Yes (Hospitalization)
  Sender: FDA-Public Use
  Company Number: US-GENENTECH-232427

PATIENT
  Sex: Male
  Weight: 82.993 kg

DRUGS (14)
  1. BEVACIZUMAB [Suspect]
     Indication: COLORECTAL CANCER METASTATIC
     Dosage: 465 MG, Q2W
     Route: 042
     Dates: start: 20060329, end: 20061101
  2. CETUXIMAB [Suspect]
     Indication: COLORECTAL CANCER METASTATIC
     Dosage: 538 MG, 1/WEEK
     Route: 042
     Dates: start: 20060329, end: 20061101
  3. FLUOROURACIL [Suspect]
     Indication: COLORECTAL CANCER METASTATIC
     Dosage: 860 MG, Q2W
     Route: 040
     Dates: start: 20060329, end: 20061101
  4. FLUOROURACIL [Suspect]
     Dosage: 5160 MG, Q2W
     Route: 042
     Dates: start: 20060329, end: 20061101
  5. LEUCOVORIN CALCIUM [Suspect]
     Indication: COLORECTAL CANCER METASTATIC
     Dosage: 360 MG, Q2W
     Route: 042
     Dates: start: 20060329, end: 20061101
  6. CORTISONE ACETATE [Concomitant]
     Indication: ADRENAL INSUFFICIENCY
     Dosage: 25 MG, QD
     Route: 048
  7. FLUDROCORTISONE ACETATE [Concomitant]
     Indication: ADRENAL INSUFFICIENCY
     Dosage: 0.1 MG, QD
     Route: 048
  8. COUMADIN [Concomitant]
     Indication: DEEP VEIN THROMBOSIS
     Dosage: 2.5 MG, QD
     Route: 048
     Dates: start: 20060912, end: 20061101
  9. COUMADIN [Concomitant]
     Dosage: 2 MG, QHS
     Route: 048
     Dates: start: 20061116
  10. PROSCAR [Concomitant]
     Indication: BENIGN PROSTATIC HYPERPLASIA
     Dosage: UNK, QD
     Route: 048
     Dates: start: 20060918
  11. CIPRO [Concomitant]
     Indication: URINARY TRACT INFECTION
     Dosage: UNK, QD
     Route: 048
     Dates: start: 20061103
  12. NEXIUM [Concomitant]
     Indication: DRUG USE FOR UNKNOWN INDICATION
  13. VITAMIN B-100 [Concomitant]
     Indication: DRUG USE FOR UNKNOWN INDICATION
  14. ASPIRIN [Concomitant]
     Indication: DRUG USE FOR UNKNOWN INDICATION

REACTIONS (1)
  - SMALL INTESTINAL OBSTRUCTION [None]
